FAERS Safety Report 24008066 (Version 1)
Quarter: 2024Q2

REPORT INFORMATION
  Report Type: Spontaneous
  Country: JP (occurrence: JP)
  Receive Date: 20240625
  Receipt Date: 20240625
  Transmission Date: 20240716
  Serious: No
  Sender: FDA-Public Use
  Company Number: JP-SHIRE-JP201718014

PATIENT
  Age: 11 Year
  Sex: Male

DRUGS (2)
  1. INTUNIV [Suspect]
     Active Substance: GUANFACINE HYDROCHLORIDE
     Indication: Attention deficit hyperactivity disorder
     Route: 048
     Dates: start: 20170724, end: 20170724
  2. INTUNIV [Suspect]
     Active Substance: GUANFACINE HYDROCHLORIDE
     Route: 048

REACTIONS (3)
  - Somnolence [Recovering/Resolving]
  - No adverse event [Unknown]
  - Medication error [Unknown]

NARRATIVE: CASE EVENT DATE: 20170724
